FAERS Safety Report 5467038-7 (Version None)
Quarter: 2007Q3

REPORT INFORMATION
  Report Type: 
  Country: None (occurrence: None)
  Receive Date: 20070924
  Receipt Date: 20070924
  Transmission Date: 20080115
  Serious: Yes (Hospitalization, Disabling)
  Sender: FDA-Public Use
  Company Number: None

PATIENT
  Age: 34 Year
  Sex: Male
  Weight: 70 kg

DRUGS (18)
  1. FABRAZYME [Suspect]
     Indication: FABRY'S DISEASE
     Dosage: 70 MG Q2WKS IV
     Route: 042
     Dates: start: 20030626
  2. FABRAZYME [Suspect]
     Indication: FABRY'S DISEASE
     Dosage: 0.9 MG/KG Q2WKS IV
     Route: 042
     Dates: start: 20011011, end: 20030619
  3. FABRAZYME [Suspect]
     Indication: FABRY'S DISEASE
     Dosage: 1 MG/KG QOD IV
     Route: 042
     Dates: start: 19980716, end: 19980724
  4. TORSEMIDE [Concomitant]
  5. PROGRAF [Concomitant]
  6. PREDNISONE [Concomitant]
  7. COLACE [Concomitant]
  8. CALCITRIOL [Concomitant]
  9. ZOLOFT [Concomitant]
  10. BACTRIM 80/400 [Concomitant]
  11. DIOVAN [Concomitant]
  12. LEFLUNOMIDE [Concomitant]
  13. DILTIAZEM [Concomitant]
  14. DOXYCYCLINE [Concomitant]
  15. HYDROVODONE [Concomitant]
  16. PROCRIT [Concomitant]
  17. PLAVIX [Concomitant]
  18. FOSAMAX [Concomitant]

REACTIONS (2)
  - ARTERIAL OCCLUSIVE DISEASE [None]
  - FOOT AMPUTATION [None]
